FAERS Safety Report 17659785 (Version 2)
Quarter: 2020Q3

REPORT INFORMATION
  Report Type: Spontaneous
  Country: JP (occurrence: JP)
  Receive Date: 20200413
  Receipt Date: 20200709
  Transmission Date: 20201102
  Serious: Yes (Hospitalization, Other)
  Sender: FDA-Public Use
  Company Number: NVSJ2020JP004209

PATIENT
  Age: 56 Year
  Sex: Male

DRUGS (1)
  1. COSENTYX [Suspect]
     Active Substance: SECUKINUMAB
     Indication: PSORIASIS
     Dosage: UNK
     Route: 065

REACTIONS (10)
  - Pyrexia [Unknown]
  - Aphthous ulcer [Unknown]
  - Haematochezia [Unknown]
  - Arthralgia [Unknown]
  - Mucosal disorder [Recovered/Resolved]
  - Ulcer [Recovered/Resolved]
  - Hyperpyrexia [Unknown]
  - Oesophageal ulcer [Unknown]
  - Ileal ulcer [Unknown]
  - Diarrhoea [Unknown]
